FAERS Safety Report 21446888 (Version 2)
Quarter: 2022Q4

REPORT INFORMATION
  Report Type: Spontaneous
  Country: US (occurrence: US)
  Receive Date: 20221012
  Receipt Date: 20221028
  Transmission Date: 20230113
  Serious: No
  Sender: FDA-Public Use
  Company Number: US-PFIZER INC-PV202200080829

PATIENT
  Age: 58 Year
  Sex: Male

DRUGS (2)
  1. EUCRISA [Suspect]
     Active Substance: CRISABOROLE
     Indication: Dermatitis atopic
     Dosage: UNK, 2X/DAY
  2. EUCRISA [Suspect]
     Active Substance: CRISABOROLE
     Dosage: UNK, 1X/DAY

REACTIONS (4)
  - Prostatitis [Unknown]
  - Seborrhoeic keratosis [Unknown]
  - Rash papular [Unknown]
  - Folliculitis [Unknown]
